FAERS Safety Report 4950735-7 (Version None)
Quarter: 2006Q1

REPORT INFORMATION
  Report Type: 
  Country: None (occurrence: None)
  Receive Date: 20060321
  Receipt Date: 20060321
  Transmission Date: 20060701
  Serious: Yes (Death)
  Sender: FDA-Public Use
  Company Number: None

PATIENT
  Sex: Female
  Weight: 79.8331 kg

DRUGS (8)
  1. PACLITAXEL [Suspect]
     Indication: OVARIAN CANCER
     Dosage: 310 MG  OVER 3 HRS   IV
     Route: 042
     Dates: start: 20050915, end: 20050915
  2. CARBOPLATIN [Suspect]
     Indication: OVARIAN CANCER
     Dosage: 505 MG     IV
     Route: 042
     Dates: start: 20050915, end: 20050915
  3. DECADRON SRC [Concomitant]
  4. BENADRYL [Concomitant]
  5. CIMETIDINE HCL [Concomitant]
  6. MEGACE [Concomitant]
  7. LEUKINE [Concomitant]
  8. LORTAB [Concomitant]

REACTIONS (2)
  - DISEASE PROGRESSION [None]
  - METASTASES TO LIVER [None]
